FAERS Safety Report 9954627 (Version 2)
Quarter: 2014Q1

REPORT INFORMATION
  Report Type: Report from Study
  Country: US (occurrence: US)
  Receive Date: 20140304
  Receipt Date: 20140304
  Transmission Date: 20141002
  Serious: No
  Sender: FDA-Public Use
  Company Number: US-ABBVIE-13P-163-1059235-00

PATIENT
  Age: 64 Year
  Sex: Female

DRUGS (17)
  1. HUMIRA [Suspect]
     Indication: CROHN^S DISEASE
     Dates: start: 20121120
  2. LISINOPRIL [Concomitant]
     Indication: CARDIAC DISORDER
  3. CARVEDILOL [Concomitant]
     Indication: CARDIAC DISORDER
     Dosage: ONE IN AM, ONE IN PM
  4. TRIAMTERENE AND HYDROCHLOROTHIAZID [Concomitant]
     Indication: CARDIAC DISORDER
     Dosage: 37.5/25 MG IN THE AM
  5. ENTOCORT [Concomitant]
     Indication: CROHN^S DISEASE
     Dosage: 3 IN THE AM
  6. ZANTAC [Concomitant]
     Indication: GASTROOESOPHAGEAL REFLUX DISEASE
  7. MERCAPTOPURINE [Concomitant]
     Indication: CROHN^S DISEASE
  8. TRAMADOL [Concomitant]
     Indication: ARTHRITIS
  9. FLAGYL [Concomitant]
     Indication: GASTRITIS
  10. IMODIUM [Concomitant]
     Indication: DIARRHOEA
  11. IMODIUM [Concomitant]
     Indication: CROHN^S DISEASE
  12. LOTS OF EYE DROPS [Concomitant]
     Indication: INFLAMMATION
  13. LOTS OF EYE DROPS [Concomitant]
     Indication: EYE LUBRICATION THERAPY
  14. LOTS OF EYE DROPS [Concomitant]
     Indication: INTRAOCULAR PRESSURE INCREASED
  15. EYE LUBRICATION [Concomitant]
     Indication: ABNORMAL SENSATION IN EYE
  16. TYLENOL [Concomitant]
     Indication: ARTHRITIS
  17. MULTIVITAMIN [Concomitant]
     Indication: PRODUCT USED FOR UNKNOWN INDICATION

REACTIONS (5)
  - Melanocytic naevus [Not Recovered/Not Resolved]
  - Melanocytic naevus [Not Recovered/Not Resolved]
  - Contusion [Not Recovered/Not Resolved]
  - Contusion [Not Recovered/Not Resolved]
  - Tenderness [Not Recovered/Not Resolved]
